FAERS Safety Report 14707047 (Version 6)
Quarter: 2018Q2

REPORT INFORMATION
  Report Type: Report from Study
  Country: None (occurrence: CH)
  Receive Date: 20180403
  Receipt Date: 20180524
  Transmission Date: 20180711
  Serious: Yes (Life-Threatening, Hospitalization, Disabling, Other)
  Sender: FDA-Public Use
  Company Number: CH-ABBVIE-18K-151-2297247-00

PATIENT
  Age: 56 Year
  Sex: Male
  Weight: 89 kg

DRUGS (41)
  1. HUMIRA [Suspect]
     Active Substance: ADALIMUMAB
     Indication: PSORIATIC ARTHROPATHY
     Route: 058
     Dates: start: 201607, end: 201611
  2. BILOL [Concomitant]
     Active Substance: BISOPROLOL
     Indication: PRODUCT USED FOR UNKNOWN INDICATION
     Dosage: IN THE MORNING
     Route: 048
  3. ACIDUM FOLICUM STREULI [Concomitant]
     Active Substance: FOLIC ACID
     Indication: PRODUCT USED FOR UNKNOWN INDICATION
     Dosage: ONE DAY BEFORE AND ONE DAY AFTER METHOTREXATE
     Route: 048
  4. EXCIPIAL U LIPOLOTION [Concomitant]
     Indication: PRODUCT USED FOR UNKNOWN INDICATION
     Dosage: 40 MG/ML IN THE MORNING AND EVENING
  5. METOJECT [Suspect]
     Active Substance: METHOTREXATE SODIUM
     Indication: PSORIATIC ARTHROPATHY
     Dosage: FRIDAYS, STOPPED DUE TO MILIARY TUBERCULOSIS,INCREASED CHOLESTASIS PARAMETERS
     Route: 058
     Dates: start: 20170814, end: 201711
  6. ACIDUM FOLICUM STREULI [Concomitant]
     Active Substance: FOLIC ACID
     Dosage: ONE DAY BEFORE AND ONE DAY AFTER METHOTREXATE
     Route: 048
  7. SAROTEN RETARD [Concomitant]
     Active Substance: AMITRIPTYLINE
     Indication: PRODUCT USED FOR UNKNOWN INDICATION
     Dosage: IN THE EVENING
     Route: 048
  8. CONCOR [Concomitant]
     Active Substance: BISOPROLOL FUMARATE
     Indication: PRODUCT USED FOR UNKNOWN INDICATION
     Dosage: IN THE MORNING
     Route: 048
  9. SORTIS [Concomitant]
     Active Substance: ATORVASTATIN
     Indication: PRODUCT USED FOR UNKNOWN INDICATION
     Dosage: FOR THE NIGHT
     Route: 048
  10. HUMIRA [Suspect]
     Active Substance: ADALIMUMAB
     Indication: PSORIASIS
     Dosage: STOPPED DUE TO MYOCARDIAL INFARCTION
     Route: 058
     Dates: start: 20151102, end: 201603
  11. NOVALGIN (CAFFEINE/PARACETAMOL/PROPYPHENAZONE) [Suspect]
     Active Substance: ACETAMINOPHEN\CAFFEINE\PROPYPHENAZONE
     Indication: PRODUCT USED FOR UNKNOWN INDICATION
     Route: 065
  12. ALDACTONE [Concomitant]
     Active Substance: SPIRONOLACTONE
     Indication: PRODUCT USED FOR UNKNOWN INDICATION
     Dosage: IN THE MORNING
     Route: 048
  13. PASPERTIN [Concomitant]
     Indication: NAUSEA
     Dosage: 1 TABLET MAX EVERY 7 HOURS
     Route: 048
  14. DAFALGAN [Concomitant]
     Active Substance: ACETAMINOPHEN
     Indication: PRODUCT USED FOR UNKNOWN INDICATION
     Route: 048
  15. ITRACONAZOL [Concomitant]
     Active Substance: ITRACONAZOLE
     Indication: PRODUCT USED FOR UNKNOWN INDICATION
     Dosage: SYSTEMIC ROUTE 1 WEEK, 3 WEEKS BREAK3 CYCLES
     Dates: start: 201501
  16. PANTOZOL [Concomitant]
     Active Substance: PANTOPRAZOLE SODIUM
     Indication: PRODUCT USED FOR UNKNOWN INDICATION
     Route: 048
  17. NICOTINELL [Concomitant]
     Active Substance: NICOTINE
     Indication: PRODUCT USED FOR UNKNOWN INDICATION
     Dosage: STAGE 1?21MG/24HOURS
  18. EFIENT [Concomitant]
     Active Substance: PRASUGREL HYDROCHLORIDE
     Indication: PRODUCT USED FOR UNKNOWN INDICATION
     Dosage: IN THE MORNING
     Route: 048
  19. GABAPENTIN. [Concomitant]
     Active Substance: GABAPENTIN
     Indication: PRODUCT USED FOR UNKNOWN INDICATION
     Dosage: IN THE MORNING, AT LUNCH AND NIGHT TIME
     Route: 048
     Dates: start: 201801
  20. IMPORTAL [Concomitant]
     Active Substance: LACTITOL
     Indication: CONSTIPATION
     Dosage: POWDER 1-2 SACHETS AS NEEDED
     Route: 003
  21. LUBEXYL [Concomitant]
     Indication: PRODUCT USED FOR UNKNOWN INDICATION
     Dosage: AXILLA ON BOTH SIDES AT LUNCH TIME
     Route: 062
  22. RELAXANE [Concomitant]
     Indication: RESTLESSNESS
     Dosage: MAX 2 TABLETS AT ONCE MAX 5 TIMES PER 24 HOURS
     Route: 048
  23. CARDURA CR [Concomitant]
     Active Substance: DOXAZOSIN MESYLATE
     Indication: PRODUCT USED FOR UNKNOWN INDICATION
     Dosage: AT NIGHT TIME
     Route: 048
  24. MEFENACID [Concomitant]
     Active Substance: MEFENAMIC ACID
     Indication: PRODUCT USED FOR UNKNOWN INDICATION
     Dosage: IN THE MORNING AND EVENING
     Route: 048
  25. AMLODIPIN AXAPHARM [Concomitant]
     Indication: PRODUCT USED FOR UNKNOWN INDICATION
     Dosage: IN THE MORNING
     Route: 048
  26. RAMIPRIL. [Concomitant]
     Active Substance: RAMIPRIL
     Indication: PRODUCT USED FOR UNKNOWN INDICATION
     Dosage: 1 IN THE MORNING, 1 AT NOON
     Route: 048
  27. AMLODIPIN [Concomitant]
     Active Substance: AMLODIPINE BESYLATE
     Indication: PRODUCT USED FOR UNKNOWN INDICATION
     Dosage: IN THE MORNING
     Route: 048
  28. CORTISONE [Suspect]
     Active Substance: CORTISONE\HYDROCORTISONE
     Indication: PRODUCT USED FOR UNKNOWN INDICATION
     Dosage: STOPPED DUE TO HIGH BLOOD PRESSURE
     Route: 065
     Dates: start: 2017
  29. ASPIRIN CARDIO [Concomitant]
     Active Substance: ASPIRIN
     Indication: PRODUCT USED FOR UNKNOWN INDICATION
     Dosage: IN THE MORNING LIFE LONG
     Route: 048
  30. VITAMIN D3 [Concomitant]
     Active Substance: CHOLECALCIFEROL
     Indication: PRODUCT USED FOR UNKNOWN INDICATION
     Dosage: 4500IU/ML AT 12:37PM
     Route: 048
  31. ICHTHOLAN [Concomitant]
     Indication: PRODUCT USED FOR UNKNOWN INDICATION
     Dosage: 50%, AXILLA ON BOTH SIDES IN THE EVENING
     Route: 062
  32. ARCOXIA [Concomitant]
     Active Substance: ETORICOXIB
     Indication: PRODUCT USED FOR UNKNOWN INDICATION
     Dosage: IN THE MORNING
     Route: 048
  33. HUMIRA [Suspect]
     Active Substance: ADALIMUMAB
     Dosage: STOPPED DUE TO DUE TO MILIARY TUBERCULOSIS,INCREASED CHOLESTASIS PARAMETERS
     Route: 058
     Dates: start: 201702, end: 201712
  34. METOJECT [Suspect]
     Active Substance: METHOTREXATE SODIUM
     Indication: PSORIASIS
     Dosage: 20MG/0.4ML, STOPPED DUE TO INSUFFICIENT DRUG EFFECT
     Route: 058
     Dates: start: 20130702, end: 20141124
  35. METOJECT [Suspect]
     Active Substance: METHOTREXATE SODIUM
     Dosage: LOWER DOSING, ??15MG/0.3ML
     Route: 065
     Dates: start: 20180119
  36. VITAMIN B6 STREULI [Concomitant]
     Indication: PRODUCT USED FOR UNKNOWN INDICATION
     Dosage: IN THE MORNING,AS LONG AS ANTI-TUBERCULOSIS THERAPY
     Route: 048
  37. COVERAM [Concomitant]
     Active Substance: AMLODIPINE\PERINDOPRIL
     Indication: PRODUCT USED FOR UNKNOWN INDICATION
     Dosage: 10 MG/10 MG IN THE MORNING
     Route: 048
  38. CRESTOR [Concomitant]
     Active Substance: ROSUVASTATIN CALCIUM
     Indication: PRODUCT USED FOR UNKNOWN INDICATION
     Dosage: IN THE MORNING
     Route: 048
  39. MIRTAZAPIN STREULI [Concomitant]
     Indication: PRODUCT USED FOR UNKNOWN INDICATION
     Dosage: AT NIGHT TIME
     Route: 048
  40. PANTOPRAZOL MEPHA LACTAB [Concomitant]
     Indication: PRODUCT USED FOR UNKNOWN INDICATION
     Dosage: IN THE MORNING
  41. VIMOVO [Concomitant]
     Active Substance: ESOMEPRAZOLE MAGNESIUM\NAPROXEN
     Indication: PRODUCT USED FOR UNKNOWN INDICATION
     Dosage: 500MG/20MG IN THE MORNING,EVENING
     Route: 048

REACTIONS (93)
  - Cardiac hypertrophy [Not Recovered/Not Resolved]
  - Mitral valve thickening [Not Recovered/Not Resolved]
  - Right ventricular dilatation [Not Recovered/Not Resolved]
  - Prostatitis [Unknown]
  - Polyneuropathy [Not Recovered/Not Resolved]
  - Staphylococcal infection [Unknown]
  - Vascular encephalopathy [Unknown]
  - Mesenteritis [Unknown]
  - Antinuclear antibody increased [Unknown]
  - Meningeal disorder [Unknown]
  - Granulocyte count increased [Recovered/Resolved]
  - Blood immunoglobulin G increased [Unknown]
  - CSF oligoclonal band present [Unknown]
  - Constipation [Unknown]
  - Nocturia [Unknown]
  - Insomnia [Unknown]
  - White matter lesion [Unknown]
  - Dyspnoea exertional [Recovered/Resolved]
  - Chest pain [Unknown]
  - Prostate cancer [Unknown]
  - Toxoplasma serology positive [Unknown]
  - Inappropriate schedule of drug administration [Recovered/Resolved]
  - Memory impairment [Unknown]
  - Androgenetic alopecia [Unknown]
  - Sjogren^s syndrome [Unknown]
  - Loss of personal independence in daily activities [Unknown]
  - General physical health deterioration [Recovering/Resolving]
  - Hypertensive heart disease [Recovering/Resolving]
  - Abdominal lymphadenopathy [Unknown]
  - Microangiopathy [Unknown]
  - Cholelithiasis [Unknown]
  - Gamma-glutamyltransferase increased [Recovered/Resolved]
  - Feeling hot [Unknown]
  - Mesenteric panniculitis [Unknown]
  - Gastrooesophageal reflux disease [Unknown]
  - Depressed mood [Unknown]
  - Left ventricular hypertrophy [Unknown]
  - Leukoencephalopathy [Unknown]
  - Normochromic normocytic anaemia [Not Recovered/Not Resolved]
  - Coronary artery disease [Not Recovered/Not Resolved]
  - Splenomegaly [Unknown]
  - Gastrointestinal oedema [Unknown]
  - Dyslipidaemia [Unknown]
  - Malaria antibody test positive [Unknown]
  - Tricuspid valve incompetence [Not Recovered/Not Resolved]
  - Acute myocardial infarction [Recovering/Resolving]
  - Blood sodium decreased [Recovered/Resolved]
  - Haematocrit decreased [Not Recovered/Not Resolved]
  - Abdominal discomfort [Unknown]
  - Weight decreased [Unknown]
  - Dry throat [Unknown]
  - Candida infection [Unknown]
  - Joint effusion [Unknown]
  - Acute myocardial infarction [Recovered/Resolved]
  - Prostatic disorder [Unknown]
  - Diastolic dysfunction [Not Recovered/Not Resolved]
  - Red cell distribution width increased [Not Recovered/Not Resolved]
  - Light chain analysis increased [Unknown]
  - Depression [Unknown]
  - Psoriasis [Recovered/Resolved]
  - Synovitis [Unknown]
  - Drug effect incomplete [Unknown]
  - Sinusitis [Unknown]
  - Hypertension [Unknown]
  - Cerebral disorder [Unknown]
  - Headache [Recovered/Resolved]
  - Post inflammatory pigmentation change [Unknown]
  - Ocular hyperaemia [Unknown]
  - Hallucination, auditory [Unknown]
  - Hypertension [Not Recovered/Not Resolved]
  - Abscess [Recovered/Resolved]
  - Rectal lesion [Unknown]
  - Spinal column injury [Unknown]
  - Osteolysis [Unknown]
  - Coronary artery occlusion [Recovered/Resolved]
  - Palpitations [Recovered/Resolved]
  - Disseminated tuberculosis [Recovering/Resolving]
  - Granulomatous lymphadenitis [Unknown]
  - Spinal osteoarthritis [Not Recovered/Not Resolved]
  - Mitral valve incompetence [Not Recovered/Not Resolved]
  - Blood potassium increased [Unknown]
  - Thirst [Unknown]
  - Disturbance in attention [Unknown]
  - Malnutrition [Unknown]
  - Left atrial dilatation [Not Recovered/Not Resolved]
  - Pleural effusion [Unknown]
  - Hypertensive cardiomyopathy [Recovering/Resolving]
  - Blood albumin decreased [Unknown]
  - Photophobia [Unknown]
  - Joint swelling [Not Recovered/Not Resolved]
  - Toxicity to various agents [Unknown]
  - Vitamin B12 deficiency [Unknown]
  - Hyperthyroidism [Unknown]

NARRATIVE: CASE EVENT DATE: 20160630
